FAERS Safety Report 4808231-3 (Version None)
Quarter: 2005Q4

REPORT INFORMATION
  Report Type: 
  Country: None (occurrence: None)
  Receive Date: 20051021
  Receipt Date: 20041014
  Transmission Date: 20060501
  Serious: Yes (Life-Threatening, Hospitalization)
  Sender: FDA-Public Use
  Company Number: EWC041041005

PATIENT
  Age: 39 Year
  Sex: Male

DRUGS (7)
  1. ZYPREXA [Suspect]
     Indication: PSYCHOTIC DISORDER
     Dosage: 20 MG DAY
     Dates: start: 20040824, end: 20040825
  2. ZYPREXA [Suspect]
     Indication: SCHIZOPHRENIFORM DISORDER
     Dosage: 20 MG DAY
     Dates: start: 20040824, end: 20040825
  3. ATENOLOL [Concomitant]
  4. ZESTORETIC [Concomitant]
  5. LOPIRIN (CAPTOPRIL BIOCHEMIE) [Concomitant]
  6. ADALAT RETARD (NIFEDIPINE PA) [Concomitant]
  7. CLONIDINE HCL [Concomitant]

REACTIONS (2)
  - PLATELET COUNT DECREASED [None]
  - WHITE BLOOD CELL COUNT DECREASED [None]
